FAERS Safety Report 6293789-0 (Version None)
Quarter: 2009Q3

REPORT INFORMATION
  Report Type: 
  Country: None (occurrence: None)
  Receive Date: 20090730
  Receipt Date: 20090717
  Transmission Date: 20100115
  Serious: Yes (Hospitalization)
  Sender: FDA-Public Use
  Company Number: 8049177

PATIENT
  Age: 51 Year
  Sex: Male
  Weight: 73.6 kg

DRUGS (3)
  1. CIMZIA [Suspect]
     Indication: CROHN'S DISEASE
     Dosage: 400 MS SC
     Route: 058
     Dates: start: 20090301, end: 20090616
  2. CIMZIA [Suspect]
     Indication: CROHN'S DISEASE
     Dosage: 400 MG SC
     Route: 058
     Dates: start: 20090717
  3. ASACOL [Concomitant]

REACTIONS (2)
  - COUGH [None]
  - VISION BLURRED [None]
